FAERS Safety Report 5755221-2 (Version None)
Quarter: 2008Q2

REPORT INFORMATION
  Report Type: 
  Country: None (occurrence: None)
  Receive Date: 20080528
  Receipt Date: 20080520
  Transmission Date: 20081010
  Serious: Yes (Life-Threatening, Hospitalization, Disabling)
  Sender: FDA-Public Use
  Company Number: 2008SP009470

PATIENT
  Age: 68 Year
  Sex: Female
  Weight: 66.5 kg

DRUGS (14)
  1. TEMODAL [Suspect]
     Indication: GLIOBLASTOMA
     Dosage: 120 MG;QD;PO : 150 MG;QD;PO
     Route: 048
     Dates: start: 20080403, end: 20080410
  2. TEMODAL [Suspect]
     Indication: SARCOMA
     Dosage: 120 MG;QD;PO : 150 MG;QD;PO
     Route: 048
     Dates: start: 20080403, end: 20080410
  3. TEMODAL [Suspect]
     Indication: GLIOBLASTOMA
     Dosage: 120 MG;QD;PO : 150 MG;QD;PO
     Route: 048
     Dates: start: 20080410, end: 20080428
  4. TEMODAL [Suspect]
     Indication: SARCOMA
     Dosage: 120 MG;QD;PO : 150 MG;QD;PO
     Route: 048
     Dates: start: 20080410, end: 20080428
  5. EPILAN-D [Concomitant]
  6. NEXIUM [Concomitant]
  7. TRITTICO [Concomitant]
  8. AMLODIPINE [Concomitant]
  9. BLOPRESS [Concomitant]
  10. THYREX [Concomitant]
  11. SEROQUEL [Concomitant]
  12. CITALOPRAM HYDROCHLORIDE [Concomitant]
  13. BACTRIM DS [Concomitant]
  14. KYTRIL [Concomitant]

REACTIONS (1)
  - PANCYTOPENIA [None]
